FAERS Safety Report 9392795 (Version 3)
Quarter: 2013Q3

REPORT INFORMATION
  Report Type: Spontaneous
  Country: US (occurrence: US)
  Receive Date: 20130710
  Receipt Date: 20130827
  Transmission Date: 20140515
  Serious: Yes (Death, Hospitalization)
  Sender: FDA-Public Use
  Company Number: US-ASTELLAS-2013US007077

PATIENT
  Age: 95 Year
  Sex: Male

DRUGS (4)
  1. XTANDI [Suspect]
     Indication: PROSTATE CANCER
     Dosage: 160 MG, UID/QD
     Route: 048
     Dates: start: 20130425, end: 20130629
  2. COUMADIN /00014802/ [Suspect]
     Indication: PRODUCT USED FOR UNKNOWN INDICATION
     Dosage: UNK
     Route: 065
  3. PREDNISONE [Concomitant]
     Indication: PRODUCT USED FOR UNKNOWN INDICATION
     Dosage: UNK
     Route: 065
  4. ZOFRAN                             /00955301/ [Concomitant]
     Indication: PRODUCT USED FOR UNKNOWN INDICATION
     Dosage: UNK
     Route: 065

REACTIONS (8)
  - Skin atrophy [Unknown]
  - Decreased appetite [Unknown]
  - Malignant neoplasm progression [Fatal]
  - Haemorrhage [Unknown]
  - Fatigue [Unknown]
  - Fall [Unknown]
  - Nausea [Unknown]
  - Back pain [Unknown]
